FAERS Safety Report 16277970 (Version 2)
Quarter: 2019Q2

REPORT INFORMATION
  Report Type: Spontaneous
  Country: JP (occurrence: JP)
  Receive Date: 20190506
  Receipt Date: 20190513
  Transmission Date: 20190711
  Serious: Yes (Hospitalization, Other)
  Sender: FDA-Public Use
  Company Number: JP-PFIZER INC-2019187448

PATIENT
  Age: 38 Year
  Sex: Male

DRUGS (2)
  1. PREDNISOLONE. [Suspect]
     Active Substance: PREDNISOLONE
     Indication: GLOMERULONEPHRITIS MINIMAL LESION
     Dosage: 45 MG, UNK
     Route: 048
  2. METHYLPREDNISOLONE SODIUM SUCCINATE. [Suspect]
     Active Substance: METHYLPREDNISOLONE SODIUM SUCCINATE
     Indication: GLOMERULONEPHRITIS MINIMAL LESION
     Dosage: 1 G, 1X/DAY (PULSE THERAPY)
     Route: 042

REACTIONS (2)
  - Portal vein thrombosis [Recovered/Resolved]
  - Drug-induced liver injury [Recovered/Resolved]
